FAERS Safety Report 20371297 (Version 1)
Quarter: 2022Q1

REPORT INFORMATION
  Report Type: Spontaneous
  Country: US (occurrence: None)
  Receive Date: 20220124
  Receipt Date: 20220124
  Transmission Date: 20220424
  Serious: No
  Sender: FDA-Public Use
  Company Number: None

PATIENT
  Age: 77 Year
  Sex: Male

DRUGS (8)
  1. EPCLUSA [Suspect]
     Active Substance: SOFOSBUVIR\VELPATASVIR
     Indication: Hepatitis
     Dosage: 1 TABLET DAILY BY MOUTH
     Route: 048
     Dates: start: 20220114
  2. AMLODIPINE [Concomitant]
     Active Substance: AMLODIPINE BESYLATE
  3. ASPIRIN [Concomitant]
     Active Substance: ASPIRIN
  4. PLAVIX [Concomitant]
     Active Substance: CLOPIDOGREL BISULFATE
  5. IRON [Concomitant]
     Active Substance: IRON
  6. fnasteride [Concomitant]
  7. PRAVASTATIN [Concomitant]
     Active Substance: PRAVASTATIN
  8. LATANOPROST [Concomitant]
     Active Substance: LATANOPROST

REACTIONS (2)
  - Neck pain [None]
  - Posture abnormal [None]
